FAERS Safety Report 12318999 (Version 1)
Quarter: 2016Q2

REPORT INFORMATION
  Report Type: Spontaneous
  Country: US (occurrence: US)
  Receive Date: 20160429
  Receipt Date: 20160429
  Transmission Date: 20160815
  Serious: Yes (Hospitalization)
  Sender: FDA-Public Use
  Company Number: US-JAZZ-2016-US-007858

PATIENT
  Age: 72 Year
  Sex: Female

DRUGS (5)
  1. BUPIVACAINE. [Suspect]
     Active Substance: BUPIVACAINE
     Dosage: UNK MG, QH
     Route: 037
  2. FENTANYL. [Suspect]
     Active Substance: FENTANYL
     Indication: PAIN
     Dosage: 0.848 ?G, QH
     Route: 037
  3. PRIALT [Suspect]
     Active Substance: ZICONOTIDE ACETATE
     Indication: PAIN
     Dosage: 1.15 ?G, QH
     Route: 037
  4. BUPIVACAINE. [Suspect]
     Active Substance: BUPIVACAINE
     Indication: PAIN
     Dosage: 0.017 MG, QH
     Route: 037
  5. FENTANYL. [Suspect]
     Active Substance: FENTANYL
     Dosage: 0.763 ?G, QH
     Route: 037

REACTIONS (3)
  - Toxicity to various agents [Recovering/Resolving]
  - Accidental overdose [Recovering/Resolving]
  - Mental status changes [Recovering/Resolving]
